FAERS Safety Report 8682591 (Version 2)
Quarter: 2012Q4

REPORT INFORMATION
  Report Type: 
  Country: US (occurrence: US)
  Receive Date: 20120725
  Receipt Date: 20120925
  Transmission Date: 20130627
  Serious: No
  Sender: FDA-Public Use
  Company Number: US-TEVA-349436USA

PATIENT
  Age: 70 None
  Sex: Female
  Weight: 74.91 kg

DRUGS (2)
  1. AZILECT [Suspect]
     Indication: PARKINSON^S DISEASE
     Dosage: .5 Milligram Daily;
     Route: 048
     Dates: start: 201203, end: 20120913
  2. PRAMIPEXOLE [Concomitant]
     Indication: PARKINSON^S DISEASE
     Dosage: .75 Milligram Daily;
     Route: 048
     Dates: start: 201203, end: 20120913

REACTIONS (2)
  - Vein disorder [Not Recovered/Not Resolved]
  - Postmenopausal haemorrhage [Not Recovered/Not Resolved]
